FAERS Safety Report 15391046 (Version 5)
Quarter: 2018Q4

REPORT INFORMATION
  Report Type: Report from Study
  Country: GB (occurrence: GB)
  Receive Date: 20180917
  Receipt Date: 20181214
  Transmission Date: 20190204
  Serious: Yes (Life-Threatening)
  Sender: FDA-Public Use
  Company Number: GB-CELGENEUS-GBR-20180903149

PATIENT
  Age: 75 Year
  Sex: Male
  Weight: 59.05 kg

DRUGS (41)
  1. LAXIDO [Concomitant]
     Active Substance: POLYETHYLENE GLYCOL 3350\POTASSIUM CHLORIDE\SODIUM BICARBONATE\SODIUM CHLORIDE
     Indication: CONSTIPATION
     Dosage: 2 DOSAGE FORMS
     Route: 048
     Dates: start: 20180628
  2. PANCREATIN [Concomitant]
     Active Substance: PANCRELIPASE
     Dosage: UNITS
     Route: 048
  3. DOMPERIDONE [Concomitant]
     Active Substance: DOMPERIDONE
     Indication: NAUSEA
     Dosage: 10 MILLIGRAM
     Route: 048
     Dates: start: 20180726
  4. RANITIDINE. [Concomitant]
     Active Substance: RANITIDINE
     Indication: VOMITING
     Dosage: 10 MILLIGRAM
     Route: 048
     Dates: start: 20180809, end: 20180809
  5. RANITIDINE. [Concomitant]
     Active Substance: RANITIDINE
     Dosage: 10 MILLIGRAM
     Route: 048
     Dates: start: 20180830, end: 20180830
  6. DALTEPARIN [Concomitant]
     Active Substance: DALTEPARIN
     Indication: DEEP VEIN THROMBOSIS
     Dosage: UNITS
     Route: 058
  7. PANCREATIN [Concomitant]
     Active Substance: PANCRELIPASE
     Dosage: 10 MILLIGRAM
     Route: 048
     Dates: start: 20180830, end: 20180830
  8. PARACETAMOL [Concomitant]
     Active Substance: ACETAMINOPHEN
     Indication: PAIN
     Dosage: 10 MG/5 MLS
     Route: 048
     Dates: start: 20180629
  9. PARACETAMOL [Concomitant]
     Active Substance: ACETAMINOPHEN
     Indication: PYREXIA
     Route: 048
     Dates: start: 20180629
  10. OMEPRAZOLE. [Concomitant]
     Active Substance: OMEPRAZOLE
     Indication: DYSPEPSIA
     Dosage: 20 MILLIGRAM
     Route: 048
     Dates: start: 20180704
  11. CO-CODOMOL [Concomitant]
     Indication: PAIN
     Dosage: 30/500 MG
     Route: 048
     Dates: start: 20180523
  12. DALTEPARIN [Concomitant]
     Active Substance: DALTEPARIN
     Indication: CHEMOTHERAPY
     Dosage: 10 MILLIGRAM
     Route: 048
     Dates: start: 20180823, end: 20180823
  13. PANCREATIN [Concomitant]
     Active Substance: PANCRELIPASE
     Indication: CHEMOTHERAPY
     Dosage: 10 MILLIGRAM
     Route: 048
     Dates: start: 20180823, end: 20180823
  14. GEMCITABINE [Suspect]
     Active Substance: GEMCITABINE\GEMCITABINE HYDROCHLORIDE
     Indication: PANCREATIC CARCINOMA
     Dosage: 1672 MG
     Route: 041
     Dates: start: 20180726, end: 20180830
  15. DALTAPARINE [Concomitant]
     Indication: THROMBOSIS
     Dosage: 10000 U
     Route: 058
     Dates: start: 20180803
  16. DEXAMETHASONE. [Concomitant]
     Active Substance: DEXAMETHASONE
     Indication: DECREASED APPETITE
  17. LONGTEC [Concomitant]
     Active Substance: OXYCODONE HYDROCHLORIDE
     Indication: PAIN
     Dosage: 20 MILLIGRAM
     Route: 048
     Dates: start: 20180802
  18. ORAMORPH [Concomitant]
     Active Substance: MORPHINE SULFATE
     Indication: PAIN
     Dosage: 10 MG/5 MLS
     Route: 048
     Dates: start: 20180629
  19. DALTEPARIN [Concomitant]
     Active Substance: DALTEPARIN
     Dosage: 10 MILLIGRAM
     Route: 048
     Dates: start: 20180830, end: 20180830
  20. ABRAXANE [Suspect]
     Active Substance: PACLITAXEL
     Indication: PANCREATIC CARCINOMA
     Dosage: 220 MG
     Route: 041
     Dates: start: 20180726, end: 20180823
  21. HYDROXCOBALAMIN [Concomitant]
     Indication: VITAMIN B12 DEFICIENCY
     Route: 058
     Dates: start: 20120517
  22. MONTELUKAST [Concomitant]
     Active Substance: MONTELUKAST SODIUM
     Indication: BENIGN PROSTATIC HYPERPLASIA
     Dosage: 10 MILLIGRAM
     Route: 048
     Dates: start: 20070312
  23. DOMPERIDONE [Concomitant]
     Active Substance: DOMPERIDONE
     Indication: CHEMOTHERAPY
     Dosage: 10 MILLIGRAM
     Route: 048
     Dates: start: 20180823, end: 20180823
  24. DOMPERIDONE [Concomitant]
     Active Substance: DOMPERIDONE
     Dosage: 10 MILLIGRAM
     Route: 048
     Dates: start: 20180830, end: 20180830
  25. DALTEPARIN [Concomitant]
     Active Substance: DALTEPARIN
     Indication: VOMITING
     Dosage: 10 MILLIGRAM
     Route: 048
     Dates: start: 20180809, end: 20180809
  26. PANCREATIN [Concomitant]
     Active Substance: PANCRELIPASE
     Indication: VOMITING
     Dosage: 10 MILLIGRAM
     Route: 048
     Dates: start: 20180809, end: 20180809
  27. HYDROXCOBALAMIN [Concomitant]
     Route: 030
  28. UNIPHYLLIN [Concomitant]
     Active Substance: THEOPHYLLINE ANHYDROUS
     Indication: ASTHMA
     Dosage: 600 MILLIGRAM
     Route: 048
     Dates: start: 20070528, end: 20180926
  29. SERETIDE [Concomitant]
     Active Substance: FLUTICASONE PROPIONATE\SALMETEROL XINAFOATE
     Indication: ASTHMA
     Dosage: 240 MILLIGRAM
     Route: 048
     Dates: start: 20050624
  30. RELVAR ELLIPTA [Concomitant]
     Active Substance: FLUTICASONE FUROATE\VILANTEROL TRIFENATATE
     Indication: ASTHMA
     Dosage: 1 PUFF
     Route: 055
  31. PANCREATIN [Concomitant]
     Active Substance: PANCRELIPASE
     Indication: PRODUCT USED FOR UNKNOWN INDICATION
     Dosage: UNITS
     Route: 048
  32. DEXAMETHASONE. [Concomitant]
     Active Substance: DEXAMETHASONE
     Indication: FATIGUE
     Dosage: 2 MILLIGRAM
     Route: 048
     Dates: start: 20180724
  33. SHORTEC [Concomitant]
     Active Substance: OXYCODONE HYDROCHLORIDE
     Indication: PAIN
     Dosage: 20 MILLIGRAM
     Route: 048
     Dates: start: 20180802
  34. SHORTEC [Concomitant]
     Active Substance: OXYCODONE HYDROCHLORIDE
     Route: 048
  35. LAXIDO [Concomitant]
     Active Substance: POLYETHYLENE GLYCOL 3350\POTASSIUM CHLORIDE\SODIUM BICARBONATE\SODIUM CHLORIDE
     Dosage: 1 SACHET
     Route: 048
  36. CREON [Concomitant]
     Active Substance: PANCRELIPASE AMYLASE\PANCRELIPASE LIPASE\PANCRELIPASE PROTEASE
     Indication: PROPHYLAXIS
     Route: 048
     Dates: start: 20180530
  37. TAMSULOSIN [Concomitant]
     Active Substance: TAMSULOSIN
     Indication: BENIGN PROSTATIC HYPERPLASIA
     Dosage: 400 MICROGRAM
     Route: 048
     Dates: start: 20080917
  38. QUININE [Concomitant]
     Active Substance: QUININE
     Indication: MUSCLE SPASMS
     Dosage: 300 MILLIGRAM
     Route: 048
     Dates: start: 20060811
  39. DOMPERIDONE [Concomitant]
     Active Substance: DOMPERIDONE
     Indication: VOMITING
     Dosage: 10 MILLIGRAM
     Route: 048
     Dates: start: 20180809, end: 20180809
  40. RANITIDINE. [Concomitant]
     Active Substance: RANITIDINE
     Indication: PRODUCT USED FOR UNKNOWN INDICATION
     Dosage: 300 MILLIGRAM
     Route: 048
  41. RANITIDINE. [Concomitant]
     Active Substance: RANITIDINE
     Indication: CHEMOTHERAPY
     Dosage: 10 MILLIGRAM
     Route: 048
     Dates: start: 20180823, end: 20180823

REACTIONS (1)
  - Sepsis [Unknown]

NARRATIVE: CASE EVENT DATE: 20180907
